FAERS Safety Report 4543686-3 (Version None)
Quarter: 2004Q4

REPORT INFORMATION
  Report Type: 
  Country: None (occurrence: None)
  Receive Date: 20041229
  Receipt Date: 20041229
  Transmission Date: 20050328
  Serious: Yes (Hospitalization)
  Sender: FDA-Public Use
  Company Number: None

PATIENT
  Age: 64 Year
  Sex: Male
  Weight: 115.6672 kg

DRUGS (1)
  1. FUROSEMIDE [Suspect]
     Dosage: 160MG   BID   ORAL
     Route: 048

REACTIONS (1)
  - RENAL FAILURE ACUTE [None]
